FAERS Safety Report 13931674 (Version 1)
Quarter: 2017Q3

REPORT INFORMATION
  Report Type: Spontaneous
  Country: DE (occurrence: DE)
  Receive Date: 20170904
  Receipt Date: 20170904
  Transmission Date: 20171127
  Serious: Yes (Death, Life-Threatening, Hospitalization, Other)
  Sender: FDA-Public Use
  Company Number: DE-STRIDES ARCOLAB LIMITED-2017SP012232

PATIENT

DRUGS (6)
  1. MIRTAZAPINE. [Suspect]
     Active Substance: MIRTAZAPINE
     Indication: SUICIDE ATTEMPT
     Dosage: 30 MG (23.5 DF)
     Route: 065
  2. IBUPROFEN. [Suspect]
     Active Substance: IBUPROFEN
     Dosage: 600 MG (5 DF)
     Route: 065
  3. QUETIAPINE. [Suspect]
     Active Substance: QUETIAPINE
     Indication: SUICIDE ATTEMPT
     Dosage: 200 MG (29 DF)
     Route: 065
  4. QUETIAPINE. [Suspect]
     Active Substance: QUETIAPINE
     Dosage: 300 MG (29 DF)
     Route: 065
  5. IBUPROFEN. [Suspect]
     Active Substance: IBUPROFEN
     Indication: SUICIDE ATTEMPT
     Dosage: 400 MG (5 DF)
     Route: 065
  6. SINUPRET                           /00578801/ [Suspect]
     Active Substance: ASCORBIC ACID\HERBALS
     Indication: SUICIDE ATTEMPT
     Dosage: 5 DOSAGE FORM, UNKNOWN
     Route: 065

REACTIONS (7)
  - Hypoxia [Unknown]
  - Respiratory failure [Fatal]
  - Hypotension [Unknown]
  - Loss of consciousness [Unknown]
  - Toxicity to various agents [Unknown]
  - Seizure [Unknown]
  - Acute respiratory distress syndrome [Unknown]
